FAERS Safety Report 4618577-X (Version None)
Quarter: 2005Q1

REPORT INFORMATION
  Report Type: 
  Country: None (occurrence: None)
  Receive Date: 20050324
  Receipt Date: 20050308
  Transmission Date: 20050727
  Serious: Yes (Other)
  Sender: FDA-Public Use
  Company Number: 2005US000339

PATIENT
  Age: 43 Year
  Sex: Female

DRUGS (1)
  1. PROTOPIC [Suspect]
     Indication: VITILIGO
     Dosage: TOPICAL
     Route: 061

REACTIONS (1)
  - BREAST CANCER FEMALE [None]
